FAERS Safety Report 12398650 (Version 6)
Quarter: 2016Q4

REPORT INFORMATION
  Report Type: Spontaneous
  Country: IE (occurrence: IE)
  Receive Date: 20160524
  Receipt Date: 20161027
  Transmission Date: 20170207
  Serious: Yes (Other)
  Sender: FDA-Public Use
  Company Number: IE-PFIZER INC-2016246627

PATIENT
  Age: 70 Year
  Sex: Male

DRUGS (2)
  1. ESOMEPRAZOLE [Concomitant]
     Active Substance: ESOMEPRAZOLE
     Dosage: 20 MG, DAILY
  2. SUTENT [Suspect]
     Active Substance: SUNITINIB MALATE
     Indication: METASTATIC RENAL CELL CARCINOMA
     Dosage: 50 MG, CYCLIC, 4/2
     Dates: start: 20160422

REACTIONS (12)
  - Hypertension [Unknown]
  - Confusional state [Unknown]
  - Limb discomfort [Unknown]
  - Liver function test increased [Unknown]
  - Anxiety [Unknown]
  - Kidney infection [Recovered/Resolved]
  - Palmar-plantar erythrodysaesthesia syndrome [Recovering/Resolving]
  - Diarrhoea [Recovered/Resolved]
  - Nausea [Unknown]
  - Skin papilloma [Unknown]
  - Influenza [Unknown]
  - Infection [Recovered/Resolved]
